FAERS Safety Report 5493466-X (Version None)
Quarter: 2007Q4

REPORT INFORMATION
  Report Type: 
  Country: None (occurrence: None)
  Receive Date: 20071023
  Receipt Date: 20071010
  Transmission Date: 20080405
  Serious: Yes (Other)
  Sender: FDA-Public Use
  Company Number: US-ELI LILLY & COMPANY-US_0503114070

PATIENT
  Age: 67 Year
  Sex: Male
  Weight: 77.097 kg

DRUGS (4)
  1. CIALIS [Suspect]
     Indication: ERECTILE DYSFUNCTION
     Dosage: 20 MG, OTHER
     Dates: start: 20040701, end: 20040707
  2. ATORVASTATIN CALCIUM [Concomitant]
     Dosage: UNK, UNKNOWN
  3. ASPIRIN [Concomitant]
     Dosage: UNK, UNKNOWN
  4. FOLATE SODIUM [Concomitant]
     Dosage: UNK, UNKNOWN

REACTIONS (3)
  - DRUG INEFFECTIVE [None]
  - LIPIDS INCREASED [None]
  - OPTIC ISCHAEMIC NEUROPATHY [None]
